FAERS Safety Report 19620345 (Version 1)
Quarter: 2021Q3

REPORT INFORMATION
  Report Type: Spontaneous
  Country: US (occurrence: US)
  Receive Date: 20210727
  Receipt Date: 20210727
  Transmission Date: 20211014
  Serious: Yes (Life-Threatening)
  Sender: FDA-Public Use
  Company Number: None

PATIENT
  Age: 59 Year
  Sex: Male
  Weight: 95.25 kg

DRUGS (1)
  1. TALTZ [Suspect]
     Active Substance: IXEKIZUMAB
     Dosage: OTHER FREQUENCY:EVERY 28 DA;?
     Route: 058
     Dates: start: 20200611, end: 20210727

REACTIONS (2)
  - Myocardial infarction [None]
  - Thrombosis [None]

NARRATIVE: CASE EVENT DATE: 20210726
